FAERS Safety Report 19367836 (Version 1)
Quarter: 2021Q2

REPORT INFORMATION
  Report Type: Spontaneous
  Country: US (occurrence: US)
  Receive Date: 20210603
  Receipt Date: 20210603
  Transmission Date: 20210717
  Serious: Yes (Hospitalization, Other)
  Sender: FDA-Public Use
  Company Number: US-NEUROCRINE BIOSCIENCES INC.-2021NBI02655

PATIENT

DRUGS (3)
  1. INGREZZA [Suspect]
     Active Substance: VALBENAZINE
     Indication: TARDIVE DYSKINESIA
     Dosage: 40 MILLIGRAM, QD
     Route: 048
     Dates: start: 2020
  2. ATIVAN [Suspect]
     Active Substance: LORAZEPAM
     Dosage: UNK
  3. XANAX [Concomitant]
     Active Substance: ALPRAZOLAM
     Dosage: UNK

REACTIONS (10)
  - Physical deconditioning [Unknown]
  - Aggression [Unknown]
  - Tic [Unknown]
  - Neurological symptom [Unknown]
  - Fall [Recovered/Resolved]
  - Urinary tract infection [Unknown]
  - Aortic aneurysm [Recovered/Resolved]
  - Hallucination [Unknown]
  - Clostridium difficile infection [Unknown]
  - Restlessness [Unknown]

NARRATIVE: CASE EVENT DATE: 2021
